FAERS Safety Report 9136410 (Version 1)
Quarter: 2013Q1

REPORT INFORMATION
  Report Type: Spontaneous
  Country: US (occurrence: US)
  Receive Date: 20130304
  Receipt Date: 20130304
  Transmission Date: 20140127
  Serious: No
  Sender: FDA-Public Use
  Company Number: US-ABBOTT-12P-163-0991069-00

PATIENT
  Sex: Male
  Weight: 86.26 kg

DRUGS (4)
  1. ANDROGEL [Suspect]
     Indication: BLOOD TESTOSTERONE DECREASED
     Dosage: 10 GRAM PACKETS
     Dates: end: 201206
  2. ANDROGEL [Suspect]
     Dosage: 10 GRAM PACKETS
     Dates: start: 201208, end: 201209
  3. ANDROGEL [Suspect]
     Indication: BLOOD TESTOSTERONE DECREASED
     Dates: start: 201206, end: 201208
  4. RAPAIMMUNE [Concomitant]
     Indication: LIVER TRANSPLANT

REACTIONS (4)
  - Joint swelling [Recovered/Resolved]
  - Local swelling [Recovered/Resolved]
  - Hepatic enzyme increased [Not Recovered/Not Resolved]
  - Red blood cell count increased [Not Recovered/Not Resolved]
